FAERS Safety Report 7445054-3 (Version None)
Quarter: 2011Q2

REPORT INFORMATION
  Report Type: 
  Country: None (occurrence: None)
  Receive Date: 20110427
  Receipt Date: 20110427
  Transmission Date: 20111010
  Serious: Yes (Other)
  Sender: FDA-Public Use
  Company Number: None

PATIENT
  Age: 79 Year
  Sex: Male
  Weight: 53.5244 kg

DRUGS (4)
  1. FLOMAX [Concomitant]
  2. TARCEVA [Suspect]
     Indication: NON-SMALL CELL LUNG CANCER
     Dosage: 150MG,DAILY,ORAL
     Route: 048
     Dates: start: 20110401
  3. TARCEVA [Concomitant]
  4. MULTI-VITAMINS [Concomitant]

REACTIONS (1)
  - LYMPHOCYTE COUNT DECREASED [None]
